FAERS Safety Report 6030861-4 (Version None)
Quarter: 2009Q1

REPORT INFORMATION
  Report Type: 
  Country: None (occurrence: None)
  Receive Date: 20090106
  Receipt Date: 20081222
  Transmission Date: 20090719
  Serious: Yes (Hospitalization, Other)
  Sender: FDA-Public Use
  Company Number: 038783

PATIENT
  Age: 68 Year
  Sex: Male

DRUGS (2)
  1. AMIODARONE HCL [Suspect]
     Dosage: 800 MG
  2. COUMADIN [Concomitant]

REACTIONS (16)
  - ARTHRALGIA [None]
  - ASPIRATION [None]
  - ATRIAL FIBRILLATION [None]
  - CSF PROTEIN INCREASED [None]
  - DYSARTHRIA [None]
  - FALL [None]
  - GUILLAIN-BARRE SYNDROME [None]
  - HYPOAESTHESIA [None]
  - LUNG ABSCESS [None]
  - LUNG DISORDER [None]
  - LUNG INFECTION [None]
  - MUSCULAR WEAKNESS [None]
  - NECROSIS [None]
  - PAIN IN EXTREMITY [None]
  - PARAESTHESIA [None]
  - RADICULOPATHY [None]
